FAERS Safety Report 6569546-4 (Version None)
Quarter: 2010Q1

REPORT INFORMATION
  Report Type: 
  Country: None (occurrence: None)
  Receive Date: 20100204
  Receipt Date: 20100126
  Transmission Date: 20100710
  Serious: Yes (Hospitalization)
  Sender: FDA-Public Use
  Company Number: GR-BRISTOL-MYERS SQUIBB COMPANY-14957856

PATIENT
  Age: 69 Year
  Sex: Male
  Weight: 69 kg

DRUGS (3)
  1. CETUXIMAB [Suspect]
     Indication: NON-SMALL CELL LUNG CANCER
     Dosage: FORMULATION:5MG/ML,RECENT INFUSION19JAN10.
     Route: 042
     Dates: start: 20091222
  2. CARBOPLATIN [Suspect]
     Indication: NON-SMALL CELL LUNG CANCER
     Dosage: 1DOSAGE FORM=5AUC(ON DAY 1 OF 21 DAY CYCLE) REDUCED TO 4AUC.RECENT INF ON 12JAN10
     Route: 042
     Dates: start: 20091222
  3. PACLITAXEL [Suspect]
     Indication: NON-SMALL CELL LUNG CANCER
     Dosage: RECENT INFUSION=12JAN10,DOSAGE TAKEN ON 1 OF 21DAY CYCLE.
     Route: 042
     Dates: start: 20091222

REACTIONS (2)
  - DYSPNOEA [None]
  - FEBRILE NEUTROPENIA [None]
